FAERS Safety Report 11321681 (Version 1)
Quarter: 2015Q3

REPORT INFORMATION
  Report Type: Spontaneous
  Country: FR (occurrence: FR)
  Receive Date: 20150729
  Receipt Date: 20150729
  Transmission Date: 20151125
  Serious: Yes (Death, Life-Threatening, Hospitalization)
  Sender: FDA-Public Use
  Company Number: FR-HOSPIRA-2834789

PATIENT
  Age: 66 Year
  Sex: Male

DRUGS (2)
  1. PAXENE                             /01116001/ [Suspect]
     Active Substance: PACLITAXEL
     Indication: CHEMOTHERAPY
     Dosage: 25,7143 MG
     Route: 041
     Dates: start: 20091209, end: 20091229
  2. PARAPLATINE [Concomitant]
     Indication: CHEMOTHERAPY
     Dosage: 548 MG
     Route: 041
     Dates: start: 20091209, end: 20091209

REACTIONS (1)
  - Severe acute respiratory syndrome [Fatal]

NARRATIVE: CASE EVENT DATE: 20091230
